FAERS Safety Report 16425425 (Version 1)
Quarter: 2019Q2

REPORT INFORMATION
  Report Type: Spontaneous
  Country: US (occurrence: US)
  Receive Date: 20190506
  Receipt Date: 20190506
  Transmission Date: 20190711
  Serious: Yes (Other)
  Sender: FDA-Public Use
  Company Number: None

PATIENT
  Age: 68 Year
  Sex: Female
  Weight: 54.88 kg

DRUGS (44)
  1. METOPROLOL TARTRATE 25MG. [Suspect]
     Active Substance: METOPROLOL TARTRATE
     Indication: ATRIAL FIBRILLATION
     Dosage: ?          QUANTITY:1 PILL;?
     Route: 048
     Dates: start: 20190430, end: 20190503
  2. ELIQUIS [Concomitant]
     Active Substance: APIXABAN
  3. VITAMIN B12 [Concomitant]
     Active Substance: CYANOCOBALAMIN
  4. ESTER-C [Concomitant]
  5. CRANBERRY FRUIT [Concomitant]
  6. L-LYSINE [Concomitant]
     Active Substance: LYSINE
  7. CANDIDA BALANCE W-COLOSTRUM PLUS [Concomitant]
  8. MEGAFOLINIC [Concomitant]
  9. RESVERATROL [Concomitant]
     Active Substance: DIETARY SUPPLEMENT\RESVERATROL
  10. FLORABIOTIC ULTRA [Concomitant]
  11. PANTOPRAZOLE SOD [Concomitant]
     Active Substance: PANTOPRAZOLE SODIUM
  12. DIGEST GOLD [Concomitant]
  13. FULVIC/HUMIC MINERALS [Concomitant]
  14. SLOW-MOTION MELATONIN [Concomitant]
  15. METOPROLOL. [Concomitant]
     Active Substance: METOPROLOL
  16. L-THEANINE [Concomitant]
     Active Substance: DIETARY SUPPLEMENT
  17. COLOSTRUM GOLD (UNFLAVORED) [Concomitant]
  18. CANDEX [Concomitant]
     Active Substance: DIETARY SUPPLEMENT
  19. OLIVE LEAF EXTRACT [Concomitant]
  20. NIACINIMIDE [Concomitant]
  21. EXTEND-RELEASE MAGNESIUM [Concomitant]
  22. MITOCHONDRIAL NRG [Concomitant]
  23. BENTONITE [Concomitant]
     Active Substance: BENTONITE
  24. PSYLLIUM HUSK POWDER [Concomitant]
  25. MAG-OROTATE [Concomitant]
  26. OSTEOPRIME [Concomitant]
  27. L-BLUTAMINE POWDER [Concomitant]
  28. PERM A VITE [Concomitant]
  29. LUTEIN [Concomitant]
     Active Substance: LUTEIN
  30. GRAPESEED EXTRACT [Concomitant]
  31. SPAZ-OUT [Concomitant]
  32. OIL OF OREGANO [Concomitant]
  33. LACTOFERRIN [Concomitant]
     Active Substance: LACTOFERRIN
  34. B-COMPLEX PLUS [Concomitant]
  35. NATURE-THROID [Concomitant]
     Active Substance: THYROID, PORCINE
  36. NAITREXONE [Concomitant]
  37. CAPRYL [Concomitant]
  38. AMINO ACID COMPLETE [Concomitant]
  39. HAWTHORN SUPREME [Concomitant]
  40. POTASSIUM CITRATE. [Concomitant]
     Active Substance: POTASSIUM CITRATE
  41. VITAMIN D3 [Concomitant]
     Active Substance: CHOLECALCIFEROL
  42. SILYMARIN [Concomitant]
     Active Substance: DIETARY SUPPLEMENT\HERBALS\MILK THISTLE
  43. INTENZYME FORTE [Concomitant]
  44. COENZYME Q10 [Concomitant]
     Active Substance: UBIDECARENONE

REACTIONS (3)
  - Chest discomfort [None]
  - Product substitution issue [None]
  - Pruritus [None]

NARRATIVE: CASE EVENT DATE: 20180503
